FAERS Safety Report 17925104 (Version 1)
Quarter: 2020Q2

REPORT INFORMATION
  Report Type: Spontaneous
  Country: DE (occurrence: DE)
  Receive Date: 20200622
  Receipt Date: 20200622
  Transmission Date: 20200714
  Serious: Yes (Death, Life-Threatening, Hospitalization)
  Sender: FDA-Public Use
  Company Number: DE-TEVA-2020-DE-1789125

PATIENT
  Age: 84 Year
  Sex: Female

DRUGS (13)
  1. METHOTREXATE. [Suspect]
     Active Substance: METHOTREXATE
     Dosage: 1.4286 MILLIGRAM DAILY; 10 MG / WEEK, MONDAY,
     Route: 048
  2. MOXONIDIN [Concomitant]
     Active Substance: MOXONIDINE
     Dosage: .2 MILLIGRAM DAILY;  1-0-0-0,
     Route: 048
  3. RAMIPRIL. [Concomitant]
     Active Substance: RAMIPRIL
     Dosage: 10 MILLIGRAM DAILY;  1-0-1-0,
     Route: 048
  4. OMEPRAZOLE. [Suspect]
     Active Substance: OMEPRAZOLE
     Dosage: 20 MILLIGRAM DAILY; 0-0-1-0,
     Route: 048
  5. COLECALCIFEROL (VITAMIN D) [Concomitant]
     Dosage: 25 MICROGRAM DAILY; 1-0-0-0,
     Route: 048
  6. SIMVASTATIN. [Concomitant]
     Active Substance: SIMVASTATIN
     Dosage: 20 MILLIGRAM DAILY;  0-0-1-0,
     Route: 048
  7. PREDNISOLONE. [Suspect]
     Active Substance: PREDNISOLONE
     Dosage: 1 MILLIGRAM DAILY; 1-0-0-0,
     Route: 048
  8. ACETYLSALICYLSAURE [Suspect]
     Active Substance: ASPIRIN
     Dosage: 100 MILLIGRAM DAILY;  0-1-0-0
     Route: 048
  9. FOLSAURE [Concomitant]
     Active Substance: FOLIC ACID
     Dosage: 5 MG / WEEK, TUESDAY,
     Route: 048
  10. METFORMIN [Concomitant]
     Active Substance: METFORMIN HYDROCHLORIDE
     Dosage: 1000 MILLIGRAM DAILY; 1-0-1-0,
     Route: 048
  11. CALCIUM-SANDOZ D OSTEO 500MG/1000I.E. [Concomitant]
     Dosage: 1 DOSAGE FORMS DAILY; 500 / 1000 MG / IU, 0-0-1-0,
     Route: 048
  12. AMLODIPIN [Concomitant]
     Active Substance: AMLODIPINE BESYLATE
     Dosage: 5 MILLIGRAM DAILY;  0-0-1-0,
     Route: 048
  13. METOPROLOL. [Concomitant]
     Active Substance: METOPROLOL
     Dosage: 50 MILLIGRAM DAILY; 1-0-0-0,
     Route: 048

REACTIONS (5)
  - Fall [Unknown]
  - Haematoma [Unknown]
  - Fracture [Unknown]
  - Traumatic haemorrhage [Unknown]
  - General physical health deterioration [Unknown]
